FAERS Safety Report 8427944-8 (Version None)
Quarter: 2012Q2

REPORT INFORMATION
  Report Type: 
  Country: None (occurrence: None)
  Receive Date: 20120611
  Receipt Date: 20120604
  Transmission Date: 20120825
  Serious: Yes (Hospitalization, Disabling, Other)
  Sender: FDA-Public Use
  Company Number: US-PFIZER INC-2011197824

PATIENT
  Sex: Female

DRUGS (3)
  1. CHANTIX [Suspect]
     Indication: SMOKING CESSATION THERAPY
     Dosage: STARTING MONTH PACK AND 1 MG CONTINUING MONTH PACK
     Route: 048
     Dates: start: 20090213, end: 20090601
  2. ALBUTEROL [Concomitant]
     Indication: CHRONIC OBSTRUCTIVE PULMONARY DISEASE
     Dosage: UNK
     Dates: start: 20060101
  3. PROAIR HFA [Concomitant]
     Indication: DYSPNOEA
     Dosage: UNK
     Dates: start: 20070101

REACTIONS (18)
  - ANXIETY [None]
  - BLINDNESS TRANSIENT [None]
  - SUICIDE ATTEMPT [None]
  - BIPOLAR DISORDER [None]
  - INTENTIONAL OVERDOSE [None]
  - AGGRESSION [None]
  - PARANOIA [None]
  - IRRITABILITY [None]
  - NIGHTMARE [None]
  - POST-TRAUMATIC STRESS DISORDER [None]
  - DEPRESSION [None]
  - PANIC ATTACK [None]
  - INSOMNIA [None]
  - ABNORMAL DREAMS [None]
  - AGORAPHOBIA [None]
  - MOOD SWINGS [None]
  - SOCIAL PHOBIA [None]
  - ANGER [None]
